APPROVED DRUG PRODUCT: LEVALBUTEROL HYDROCHLORIDE
Active Ingredient: LEVALBUTEROL HYDROCHLORIDE
Strength: EQ 0.042% BASE
Dosage Form/Route: SOLUTION;INHALATION
Application: A078171 | Product #003 | TE Code: AN
Applicant: CIPLA LTD
Approved: Dec 13, 2013 | RLD: No | RS: No | Type: RX